FAERS Safety Report 15423445 (Version 1)
Quarter: 2018Q3

REPORT INFORMATION
  Report Type: Spontaneous
  Country: US (occurrence: US)
  Receive Date: 20180925
  Receipt Date: 20180925
  Transmission Date: 20181010
  Serious: No
  Sender: FDA-Public Use
  Company Number: US-LEXICON PHARMACEUTICALS, INC-18-1606-01089

PATIENT
  Sex: Male
  Weight: 82.63 kg

DRUGS (35)
  1. NITROSTAT [Concomitant]
     Active Substance: NITROGLYCERIN
     Route: 060
  2. ONDANSETRON [Concomitant]
     Active Substance: ONDANSETRON
  3. TRIAMTERENE?HYDROCHLORTHIAZID [Concomitant]
  4. COLCRYS [Concomitant]
     Active Substance: COLCHICINE
     Route: 048
  5. OPTIVAR [Concomitant]
     Active Substance: AZELASTINE HYDROCHLORIDE
     Route: 047
  6. LOMOTIL [Concomitant]
     Active Substance: ATROPINE SULFATE\DIPHENOXYLATE HYDROCHLORIDE
     Route: 048
  7. SYMBICORT [Concomitant]
     Active Substance: BUDESONIDE\FORMOTEROL FUMARATE DIHYDRATE
  8. EVEROLIMUS. [Concomitant]
     Active Substance: EVEROLIMUS
  9. ALLOPURINOL. [Concomitant]
     Active Substance: ALLOPURINOL
  10. AZITHROMYCIN ANHYDROUS. [Concomitant]
     Active Substance: AZITHROMYCIN ANHYDROUS
  11. LOPERAMIDE [Concomitant]
     Active Substance: LOPERAMIDE
  12. TEMAZEPAM. [Concomitant]
     Active Substance: TEMAZEPAM
     Route: 048
  13. VITAMIN B12 [Concomitant]
     Active Substance: CYANOCOBALAMIN
  14. METOPROLOL SUCCINATE. [Concomitant]
     Active Substance: METOPROLOL SUCCINATE
  15. TELOTRISTAT ETHYL [Suspect]
     Active Substance: TELOTRISTAT ETHYL
     Indication: CARCINOID TUMOUR
     Route: 048
     Dates: start: 20180425, end: 2018
  16. TELOTRISTAT ETHYL [Suspect]
     Active Substance: TELOTRISTAT ETHYL
     Route: 048
     Dates: start: 20180511
  17. LORAZEPAM. [Concomitant]
     Active Substance: LORAZEPAM
  18. OCTREOTIDE ACETATE. [Concomitant]
     Active Substance: OCTREOTIDE ACETATE
     Route: 058
  19. PROVENTIL HFA [Concomitant]
     Active Substance: ALBUTEROL SULFATE
     Route: 048
  20. OMEPRAZOLE. [Concomitant]
     Active Substance: OMEPRAZOLE
  21. BENADRYL [Concomitant]
     Active Substance: DIPHENHYDRAMINE HYDROCHLORIDE
     Route: 048
  22. OYSTER SHELL CALCIUM [Concomitant]
     Active Substance: CALCIUM
  23. OXYCODONE [Concomitant]
     Active Substance: OXYCODONE
     Route: 048
  24. ASPIRIN. [Concomitant]
     Active Substance: ASPIRIN
  25. IBUPROFEN. [Concomitant]
     Active Substance: IBUPROFEN
  26. SANDOSTATIN LAR DEPOT [Concomitant]
     Active Substance: OCTREOTIDE ACETATE
     Route: 030
  27. DEXAMETHASONE. [Concomitant]
     Active Substance: DEXAMETHASONE
     Route: 048
  28. TAMSULOSIN [Concomitant]
     Active Substance: TAMSULOSIN
  29. SALINE MIST [Concomitant]
     Active Substance: SODIUM CHLORIDE
     Route: 045
  30. LEVAQUIN [Concomitant]
     Active Substance: LEVOFLOXACIN
     Route: 048
  31. ADVAIR DISKUS [Concomitant]
     Active Substance: FLUTICASONE PROPIONATE\SALMETEROL XINAFOATE
  32. CETIRIZINE [Concomitant]
     Active Substance: CETIRIZINE HYDROCHLORIDE
  33. PROCTOZONE?HC [Concomitant]
     Active Substance: HYDROCORTISONE
  34. CALCIUM [Concomitant]
     Active Substance: CALCIUM
     Route: 048
  35. SANDOSTATIN LAR DEPOT [Concomitant]
     Active Substance: OCTREOTIDE ACETATE
     Dates: start: 1997, end: 199803

REACTIONS (1)
  - Wound [Not Recovered/Not Resolved]

NARRATIVE: CASE EVENT DATE: 2018
